FAERS Safety Report 14292520 (Version 4)
Quarter: 2018Q2

REPORT INFORMATION
  Report Type: Report from Study
  Country: US (occurrence: US)
  Receive Date: 20171215
  Receipt Date: 20180522
  Transmission Date: 20180711
  Serious: Yes (Hospitalization)
  Sender: FDA-Public Use
  Company Number: US-PFIZER INC-2017034939

PATIENT
  Age: 70 Year
  Sex: Female
  Weight: 82 kg

DRUGS (12)
  1. IBRANCE [Suspect]
     Active Substance: PALBOCICLIB
     Dosage: 125 MG, 1X/DAY
     Route: 048
     Dates: start: 20170116
  2. GABAPENTIN. [Concomitant]
     Active Substance: GABAPENTIN
     Indication: NEUROPATHY PERIPHERAL
     Dosage: 600 MG, 2X/DAY, (2 TABLETS TWICE A DAY)
     Dates: start: 201610
  3. LEVETIRACETAM. [Concomitant]
     Active Substance: LEVETIRACETAM
     Indication: PROPHYLAXIS
  4. IBRANCE [Suspect]
     Active Substance: PALBOCICLIB
     Dosage: 125 MG, CYCLIC [21 DAYS AND THEN SHE HAS 7 DAYS OFF]
  5. METOPROLOL. [Concomitant]
     Active Substance: METOPROLOL
     Indication: BLOOD PRESSURE MANAGEMENT
     Dosage: 20 MG, 1X/DAY
     Dates: start: 201610
  6. LETROZOLE. [Concomitant]
     Active Substance: LETROZOLE
     Indication: HER-2 POSITIVE BREAST CANCER
     Dosage: 2.5 MG, 1X/DAY, (WITH THE IBRANCE)
     Dates: start: 201701
  7. HYDROCODONE [Concomitant]
     Active Substance: HYDROCODONE
     Indication: PAIN
     Dosage: 1 TABLET(10/325MG),EVERY 6 HOURS AS NEEDED
     Dates: start: 201610
  8. LETROZOLE. [Concomitant]
     Active Substance: LETROZOLE
     Dosage: UNK
     Dates: start: 201610
  9. LISINOPRIL. [Concomitant]
     Active Substance: LISINOPRIL
     Indication: BLOOD PRESSURE MANAGEMENT
     Dosage: 20 MG, UNK
     Dates: start: 201610
  10. IBRANCE [Suspect]
     Active Substance: PALBOCICLIB
     Indication: BREAST CANCER METASTATIC
     Dosage: 125 MG, 1X/DAY
     Route: 048
     Dates: start: 20170106
  11. LEVETIRACETAM. [Concomitant]
     Active Substance: LEVETIRACETAM
     Indication: SEIZURE
     Dosage: 500 MG, 2X/DAY
     Dates: start: 201610
  12. ATORVASTATIN [Concomitant]
     Active Substance: ATORVASTATIN
     Indication: BLOOD PRESSURE MANAGEMENT
     Dosage: 20 MG, 1X/DAY
     Dates: start: 201610

REACTIONS (10)
  - Full blood count abnormal [Not Recovered/Not Resolved]
  - Therapeutic response unexpected [Unknown]
  - Pollakiuria [Unknown]
  - Drug dispensing error [Unknown]
  - Drug dose omission [Unknown]
  - Dysuria [Unknown]
  - Constipation [Recovering/Resolving]
  - Tumour marker increased [Recovering/Resolving]
  - Diarrhoea [Recovered/Resolved]
  - Anaemia [Not Recovered/Not Resolved]

NARRATIVE: CASE EVENT DATE: 201701
